FAERS Safety Report 13701178 (Version 1)
Quarter: 2017Q2

REPORT INFORMATION
  Report Type: Spontaneous
  Country: US (occurrence: US)
  Receive Date: 20170629
  Receipt Date: 20170629
  Transmission Date: 20170830
  Serious: No
  Sender: FDA-Public Use
  Company Number: None

PATIENT
  Age: 64 Year
  Sex: Male
  Weight: 90.72 kg

DRUGS (3)
  1. CIPROFLOXACIN. [Suspect]
     Active Substance: CIPROFLOXACIN
     Indication: PROSTATIC SPECIFIC ANTIGEN INCREASED
     Dosage: FREQUENCY - 2
     Route: 048
     Dates: start: 20170227, end: 20170322
  2. GLOUCOMA DROPS [Concomitant]
  3. CIPROFLOXACIN. [Suspect]
     Active Substance: CIPROFLOXACIN
     Indication: PROSTATIC DISORDER
     Dosage: FREQUENCY - 2
     Route: 048
     Dates: start: 20170227, end: 20170322

REACTIONS (5)
  - Therapy cessation [None]
  - Joint swelling [None]
  - Tendon disorder [None]
  - Dysstasia [None]
  - Arthralgia [None]

NARRATIVE: CASE EVENT DATE: 20170310
